FAERS Safety Report 5570168-2 (Version None)
Quarter: 2007Q4

REPORT INFORMATION
  Report Type: 
  Country: None (occurrence: None)
  Receive Date: 20071220
  Receipt Date: 20071212
  Transmission Date: 20080405
  Serious: Yes (Disabling, Other)
  Sender: FDA-Public Use
  Company Number: US-PFIZER INC-2007074472

PATIENT
  Age: 79 Year
  Sex: Female

DRUGS (8)
  1. NORVASC [Suspect]
  2. XANAX [Suspect]
  3. CATAPRES-TTS-1 [Suspect]
     Dosage: TEXT:#3
  4. NEXIUM [Suspect]
  5. ISRADIPINE [Suspect]
  6. EDECRIN [Suspect]
  7. METOPROLOL SUCCINATE [Concomitant]
  8. NEURONTIN [Concomitant]

REACTIONS (16)
  - ASPERGILLOSIS [None]
  - ASTHMA [None]
  - CATARACT [None]
  - DEHYDRATION [None]
  - DEPRESSED MOOD [None]
  - ERYTHEMA [None]
  - FUNGAL INFECTION [None]
  - GAIT DISTURBANCE [None]
  - HYPERTENSION [None]
  - INSOMNIA [None]
  - MALAISE [None]
  - NEUROPATHY PERIPHERAL [None]
  - OEDEMA PERIPHERAL [None]
  - PAIN [None]
  - STAPHYLOCOCCAL INFECTION [None]
  - SWELLING [None]
